FAERS Safety Report 13463863 (Version 1)
Quarter: 2017Q2

REPORT INFORMATION
  Report Type: Spontaneous
  Country: US (occurrence: US)
  Receive Date: 20170420
  Receipt Date: 20170420
  Transmission Date: 20170830
  Serious: Yes (Other)
  Sender: FDA-Public Use
  Company Number: US-ROCHE-552318

PATIENT
  Sex: Female

DRUGS (3)
  1. CLARAVIS [Suspect]
     Active Substance: ISOTRETINOIN
     Indication: PRODUCT USED FOR UNKNOWN INDICATION
     Dosage: DISPENSED ISOTRETINOIN 20 MG CAPS ON 3 MAR 08 AND 25 JUN 09, 30 MG AND 40 MG CAPS ON 29 JUL 09,
     Route: 065
  2. SOTRET [Suspect]
     Active Substance: ISOTRETINOIN
     Indication: ACNE
     Dosage: WAS DISPENSED SOTRET 40 MG CAPSULES ON 26 MAY 2009
     Route: 048
     Dates: start: 20090326, end: 20090902
  3. ACCUTANE [Suspect]
     Active Substance: ISOTRETINOIN
     Indication: PRODUCT USED FOR UNKNOWN INDICATION
     Dosage: THE PATIENT WAS DISPENSED ISOTRETINOIN 20 MG CAPSULES ON 4 FEBRUARY 2008.
     Route: 065

REACTIONS (3)
  - Neutropenia [Not Recovered/Not Resolved]
  - Menstrual disorder [Unknown]
  - White blood cell count decreased [Not Recovered/Not Resolved]
